FAERS Safety Report 15779973 (Version 1)
Quarter: 2019Q1

REPORT INFORMATION
  Report Type: Spontaneous
  Country: US (occurrence: US)
  Receive Date: 20190102
  Receipt Date: 20190102
  Transmission Date: 20190417
  Serious: No
  Sender: FDA-Public Use
  Company Number: US-UNITED THERAPEUTICS-UNT-2018-020521

PATIENT
  Age: 63 Year
  Sex: Female
  Weight: 102.4 kg

DRUGS (2)
  1. TYVASO [Suspect]
     Active Substance: TREPROSTINIL
     Dosage: 30 ?G, UNK
     Dates: start: 20181219
  2. TYVASO [Suspect]
     Active Substance: TREPROSTINIL
     Indication: PULMONARY ARTERIAL HYPERTENSION
     Dosage: 18-54 MICROGRAMS, QID
     Dates: start: 20181130

REACTIONS (11)
  - Oropharyngeal pain [Not Recovered/Not Resolved]
  - Skin burning sensation [Unknown]
  - Neck pain [Unknown]
  - Vomiting [Unknown]
  - Pruritus [Unknown]
  - Headache [Unknown]
  - Mobility decreased [Unknown]
  - Dyspepsia [Unknown]
  - Nausea [Not Recovered/Not Resolved]
  - Flushing [Unknown]
  - Cough [Unknown]

NARRATIVE: CASE EVENT DATE: 2018
